FAERS Safety Report 6866443-1 (Version None)
Quarter: 2010Q2

REPORT INFORMATION
  Report Type: 
  Country: None (occurrence: None)
  Receive Date: 20100601
  Receipt Date: 20100415
  Transmission Date: 20101027
  Serious: No
  Sender: FDA-Public Use
  Company Number: MC201000125

PATIENT
  Sex: Female

DRUGS (3)
  1. CLEVIPREX [Suspect]
     Indication: PRE-ECLAMPSIA
     Dosage: 25 UG, MIN ; 50 UG, MIN ; 125 UG, MIN
     Dates: start: 20100415, end: 20100415
  2. CLEVIPREX [Suspect]
     Indication: PRE-ECLAMPSIA
     Dosage: 25 UG, MIN ; 50 UG, MIN ; 125 UG, MIN
     Dates: start: 20100415, end: 20100415
  3. CLEVIPREX [Suspect]
     Indication: PRE-ECLAMPSIA
     Dosage: 25 UG, MIN ; 50 UG, MIN ; 125 UG, MIN
     Dates: start: 20100415, end: 20100415

REACTIONS (2)
  - DRUG EXPOSURE DURING PREGNANCY [None]
  - NO ADVERSE EVENT [None]
